FAERS Safety Report 4728787-9 (Version None)
Quarter: 2005Q3

REPORT INFORMATION
  Report Type: 
  Country: None (occurrence: None)
  Receive Date: 20050721
  Receipt Date: 20050506
  Transmission Date: 20060218
  Serious: No
  Sender: FDA-Public Use
  Company Number: 2005SP000608

PATIENT
  Age: 48 Year
  Sex: Female
  Weight: 41.7309 kg

DRUGS (3)
  1. LUNESTA [Suspect]
     Indication: INSOMNIA
     Dosage: 3 MG; HS; ORAL
     Route: 048
     Dates: start: 20050504
  2. TOPAMAC [Concomitant]
  3. AMBIEN [Concomitant]

REACTIONS (1)
  - HEADACHE [None]
